FAERS Safety Report 19737358 (Version 4)
Quarter: 2021Q4

REPORT INFORMATION
  Report Type: Report from Study
  Country: US (occurrence: US)
  Receive Date: 20210823
  Receipt Date: 20211220
  Transmission Date: 20220303
  Serious: Yes (Death, Hospitalization, Other)
  Sender: FDA-Public Use
  Company Number: US-NOVARTISTESTPH-NVSC2021US189414

PATIENT
  Age: 29 Year
  Sex: Female

DRUGS (3)
  1. PIQRAY [Suspect]
     Active Substance: ALPELISIB
     Indication: Breast cancer metastatic
     Dosage: 300 MG, QD
     Route: 048
     Dates: start: 20210727, end: 20211029
  2. PIQRAY [Suspect]
     Active Substance: ALPELISIB
     Dosage: 250 MG, QD
     Route: 048
  3. PIQRAY [Suspect]
     Active Substance: ALPELISIB
     Dosage: 300 MG, QD (FOR 2-3 MONTHS)
     Route: 065

REACTIONS (6)
  - Hepatic failure [Fatal]
  - Encephalopathy [Fatal]
  - Ammonia increased [Fatal]
  - Hyperglycaemia [Unknown]
  - Ascites [Fatal]
  - Liver function test increased [Fatal]

NARRATIVE: CASE EVENT DATE: 20201101
